FAERS Safety Report 21087720 (Version 1)
Quarter: 2022Q3

REPORT INFORMATION
  Report Type: Spontaneous
  Country: US (occurrence: US)
  Receive Date: 20220715
  Receipt Date: 20220715
  Transmission Date: 20221027
  Serious: Yes (Other)
  Sender: FDA-Public Use
  Company Number: US-GLAXOSMITHKLINE-USCH2022023947

PATIENT

DRUGS (2)
  1. SENSODYNE [Suspect]
     Active Substance: POTASSIUM NITRATE\SODIUM FLUORIDE
     Indication: Hyperaesthesia teeth
     Dosage: UNK
  2. SENSODYNE SENSITIVITY AND GUM MINT [Suspect]
     Active Substance: STANNOUS FLUORIDE
     Indication: Hyperaesthesia teeth
     Dosage: UNK

REACTIONS (10)
  - Gingival disorder [Unknown]
  - Hyperaesthesia teeth [Unknown]
  - Condition aggravated [Unknown]
  - Bedridden [Unknown]
  - Aphthous ulcer [Unknown]
  - Mouth swelling [Unknown]
  - Hypersensitivity [Unknown]
  - Lip swelling [Unknown]
  - Inappropriate schedule of product administration [Unknown]
  - Drug ineffective [Unknown]
